FAERS Safety Report 7323936-0 (Version None)
Quarter: 2011Q1

REPORT INFORMATION
  Report Type: 
  Country: None (occurrence: None)
  Receive Date: 20110301
  Receipt Date: 20110218
  Transmission Date: 20110831
  Serious: Yes (Other)
  Sender: FDA-Public Use
  Company Number: B0639548A

PATIENT
  Sex: Male

DRUGS (13)
  1. ATENOLOL [Concomitant]
  2. LEVODOPA [Concomitant]
  3. QUETIAPINE [Concomitant]
  4. ISOTARD [Concomitant]
  5. TEMAZEPAM [Concomitant]
  6. STALEVO 100 [Concomitant]
  7. CO-CARELDOPA [Concomitant]
  8. SIMVASTATIN [Concomitant]
  9. REQUIP [Suspect]
     Indication: PARKINSON'S DISEASE
     Dates: start: 19980201, end: 20080801
  10. ORPHENADRINE CITRATE [Concomitant]
  11. ASPIRIN [Concomitant]
  12. BENDROFLUMETHIAZIDE [Concomitant]
  13. RAMIPRIL [Concomitant]

REACTIONS (7)
  - SOMNOLENCE [None]
  - HYPERSEXUALITY [None]
  - PATHOLOGICAL GAMBLING [None]
  - HALLUCINATION, VISUAL [None]
  - DEPENDENCE [None]
  - SOCIAL PROBLEM [None]
  - COGNITIVE DISORDER [None]
